FAERS Safety Report 19679004 (Version 1)
Quarter: 2021Q3

REPORT INFORMATION
  Report Type: Report from Study
  Country: None (occurrence: US)
  Receive Date: 20210810
  Receipt Date: 20210810
  Transmission Date: 20211014
  Serious: Yes (Other)
  Sender: FDA-Public Use
  Company Number: US-ABBVIE-21K-163-3745807-00

PATIENT
  Age: 37 Year
  Sex: Female

DRUGS (7)
  1. SERTRALINE [Concomitant]
     Active Substance: SERTRALINE HYDROCHLORIDE
     Indication: PRODUCT USED FOR UNKNOWN INDICATION
  2. HUMIRA [Suspect]
     Active Substance: ADALIMUMAB
     Indication: COLITIS ULCERATIVE
     Route: 058
     Dates: start: 20201229, end: 20201229
  3. PREDNISONE. [Suspect]
     Active Substance: PREDNISONE
     Indication: PRODUCT USED FOR UNKNOWN INDICATION
     Route: 065
  4. COVID?19 VACCINE [Concomitant]
     Route: 030
  5. HUMIRA [Suspect]
     Active Substance: ADALIMUMAB
     Indication: UVEITIS
     Route: 058
     Dates: start: 2021
  6. CANASA [Concomitant]
     Active Substance: MESALAMINE
     Indication: PRODUCT USED FOR UNKNOWN INDICATION
  7. COVID?19 VACCINE [Concomitant]
     Indication: COVID-19 IMMUNISATION
     Route: 030

REACTIONS (37)
  - Loss of personal independence in daily activities [Not Recovered/Not Resolved]
  - Abnormal faeces [Unknown]
  - Sinus congestion [Not Recovered/Not Resolved]
  - Insomnia [Not Recovered/Not Resolved]
  - Arthralgia [Not Recovered/Not Resolved]
  - Nausea [Not Recovered/Not Resolved]
  - Dyspnoea [Unknown]
  - Systemic lupus erythematosus rash [Unknown]
  - Chills [Unknown]
  - Secretion discharge [Not Recovered/Not Resolved]
  - Hyperhidrosis [Unknown]
  - Diarrhoea [Not Recovered/Not Resolved]
  - Malaise [Not Recovered/Not Resolved]
  - Headache [Not Recovered/Not Resolved]
  - Weight increased [Not Recovered/Not Resolved]
  - Depressed mood [Not Recovered/Not Resolved]
  - Abdominal pain [Not Recovered/Not Resolved]
  - Hypoaesthesia [Unknown]
  - Lupus-like syndrome [Unknown]
  - Ulcerative keratitis [Recovered/Resolved]
  - Fatigue [Not Recovered/Not Resolved]
  - Constipation [Not Recovered/Not Resolved]
  - Diarrhoea [Recovered/Resolved]
  - Injection site bruising [Unknown]
  - Vomiting [Not Recovered/Not Resolved]
  - Haematochezia [Unknown]
  - Sensory disturbance [Unknown]
  - Swelling face [Not Recovered/Not Resolved]
  - Rash [Unknown]
  - Paraesthesia [Unknown]
  - Fear [Not Recovered/Not Resolved]
  - Eye inflammation [Not Recovered/Not Resolved]
  - Anxiety [Not Recovered/Not Resolved]
  - Oedema peripheral [Unknown]
  - Decreased appetite [Not Recovered/Not Resolved]
  - Mucous stools [Unknown]
  - Uveitis [Not Recovered/Not Resolved]

NARRATIVE: CASE EVENT DATE: 202012
